FAERS Safety Report 7801276-0 (Version None)
Quarter: 2011Q4

REPORT INFORMATION
  Report Type: 
  Country: None (occurrence: None)
  Receive Date: 20111007
  Receipt Date: 20110930
  Transmission Date: 20120403
  Serious: No
  Sender: FDA-Public Use
  Company Number: US-BIOGENIDEC-2011BI037588

PATIENT
  Age: 27 Year
  Sex: Female

DRUGS (1)
  1. AVONEX [Suspect]
     Indication: MULTIPLE SCLEROSIS
     Route: 030
     Dates: start: 20110909

REACTIONS (5)
  - INFLUENZA LIKE ILLNESS [None]
  - PYREXIA [None]
  - PAIN [None]
  - HEADACHE [None]
  - ABDOMINAL DISCOMFORT [None]
